FAERS Safety Report 5124138-9 (Version None)
Quarter: 2006Q4

REPORT INFORMATION
  Report Type: 
  Country: None (occurrence: None)
  Receive Date: 20061010
  Receipt Date: 20060410
  Transmission Date: 20070319
  Serious: No
  Sender: FDA-Public Use
  Company Number: US-BRISTOL-MYERS SQUIBB COMPANY-13341334

PATIENT
  Age: 72 Year
  Sex: Female
  Weight: 52 kg

DRUGS (3)
  1. AVAPRO [Suspect]
     Indication: HYPERTENSION
     Dosage: THREE MONTHS AGO, DOSE WAS REDUCED TO 150 MG DAILY, THEN DECREASED TO 75 MG DAILY IN APR-2006
     Dates: start: 20050101
  2. AVAPRO [Suspect]
     Dates: start: 20050101
  3. ASPIRIN [Concomitant]
     Dates: start: 20060301

REACTIONS (5)
  - DIZZINESS [None]
  - MUSCLE SPASMS [None]
  - MYALGIA [None]
  - PRURITUS [None]
  - VISION BLURRED [None]
